FAERS Safety Report 13871780 (Version 6)
Quarter: 2019Q4

REPORT INFORMATION
  Report Type: Spontaneous
  Country: US (occurrence: US)
  Receive Date: 20170816
  Receipt Date: 20191009
  Transmission Date: 20200122
  Serious: Yes (Other)
  Sender: FDA-Public Use
  Company Number: US-PFIZER INC-2017346605

PATIENT
  Age: 71 Year
  Sex: Male

DRUGS (3)
  1. ELELYSO [Suspect]
     Active Substance: TALIGLUCERASE ALFA
     Indication: GAUCHER^S DISEASE TYPE I
     Dosage: EVERY 2 WEEKS
     Route: 041
  2. ELELYSO [Suspect]
     Active Substance: TALIGLUCERASE ALFA
     Dosage: 5200 IU, EVERY 2 WEEKS
  3. ELELYSO [Suspect]
     Active Substance: TALIGLUCERASE ALFA
     Dosage: 5600 IU, EVERY 2 WEEKS

REACTIONS (5)
  - Poor venous access [Unknown]
  - Discomfort [Unknown]
  - Rash [Unknown]
  - Plasmacytoma [Unknown]
  - Vascular access site bruising [Unknown]
